FAERS Safety Report 6115509-2 (Version None)
Quarter: 2009Q1

REPORT INFORMATION
  Report Type: 
  Country: None (occurrence: None)
  Receive Date: 20090313
  Receipt Date: 20090303
  Transmission Date: 20090719
  Serious: Yes (Other)
  Sender: FDA-Public Use
  Company Number: US-PFIZER INC-2009178234

PATIENT
  Sex: Male
  Weight: 155 kg

DRUGS (5)
  1. CELEBREX [Suspect]
     Indication: INFLAMMATION
     Dosage: 200 MG, 2X/DAY
  2. ANAESTHETICS [Suspect]
     Indication: HYPOAESTHESIA ORAL
     Dates: start: 20090303
  3. METFORMIN [Concomitant]
  4. DIOVAN [Concomitant]
  5. PAROXETINE [Concomitant]

REACTIONS (3)
  - CHILLS [None]
  - COGNITIVE DISORDER [None]
  - HEADACHE [None]
